FAERS Safety Report 5162737-9 (Version None)
Quarter: 2006Q4

REPORT INFORMATION
  Report Type: 
  Country: None (occurrence: None)
  Receive Date: 20061201
  Receipt Date: 20061128
  Transmission Date: 20070319
  Serious: Yes (Hospitalization)
  Sender: FDA-Public Use
  Company Number: FR-BRISTOL-MYERS SQUIBB COMPANY-13586433

PATIENT
  Age: 46 Year
  Sex: Male

DRUGS (4)
  1. ATAZANAVIR [Suspect]
     Indication: HIV INFECTION
     Dates: start: 20040904
  2. RITONAVIR [Suspect]
     Dates: start: 20040904
  3. ABACAVIR [Suspect]
     Dates: start: 20040904
  4. LAMIVUDINE [Suspect]
     Dates: start: 20040904

REACTIONS (1)
  - CALCULUS URINARY [None]
